FAERS Safety Report 23388245 (Version 1)
Quarter: 2024Q1

REPORT INFORMATION
  Report Type: Spontaneous
  Country: US (occurrence: US)
  Receive Date: 20240110
  Receipt Date: 20240110
  Transmission Date: 20240409
  Serious: No
  Sender: FDA-Public Use
  Company Number: US-BIOVITRUM-2024-US-000265

PATIENT
  Age: 19 Month
  Sex: Female
  Weight: 9.57 kg

DRUGS (1)
  1. SYNAGIS [Suspect]
     Active Substance: PALIVIZUMAB
     Indication: Premature baby
     Dosage: INJECT 15 MG/KG INTO THE MUSCLE ONCE A MONTH?DISCARD REMAINING PORTION AFTER OPENING.
     Route: 030

REACTIONS (1)
  - Respiratory syncytial virus infection [Unknown]
